FAERS Safety Report 25278230 (Version 1)
Quarter: 2025Q2

REPORT INFORMATION
  Report Type: Spontaneous
  Country: CN (occurrence: CN)
  Receive Date: 20250507
  Receipt Date: 20250507
  Transmission Date: 20250716
  Serious: Yes (Hospitalization)
  Sender: GLAND PHARMA LTD
  Company Number: CN-GLANDPHARMA-CN-2025GLNLIT01201

PATIENT
  Age: 55 Year
  Sex: Female
  Weight: 61 kg

DRUGS (19)
  1. PACLITAXEL [Suspect]
     Active Substance: PACLITAXEL
     Indication: Cervix cancer metastatic
     Route: 042
     Dates: start: 20211202
  2. PACLITAXEL [Suspect]
     Active Substance: PACLITAXEL
     Route: 042
     Dates: start: 20211223
  3. PACLITAXEL [Suspect]
     Active Substance: PACLITAXEL
     Route: 042
     Dates: start: 20220209
  4. PACLITAXEL [Suspect]
     Active Substance: PACLITAXEL
     Route: 042
     Dates: start: 20220303
  5. CISPLATIN [Concomitant]
     Active Substance: CISPLATIN
     Route: 042
     Dates: start: 20211202
  6. CISPLATIN [Concomitant]
     Active Substance: CISPLATIN
     Route: 042
     Dates: start: 20211202
  7. CISPLATIN [Concomitant]
     Active Substance: CISPLATIN
     Route: 042
     Dates: start: 20211223
  8. CISPLATIN [Concomitant]
     Active Substance: CISPLATIN
     Route: 042
     Dates: start: 20211223
  9. CISPLATIN [Concomitant]
     Active Substance: CISPLATIN
     Route: 042
     Dates: start: 20220112
  10. CISPLATIN [Concomitant]
     Active Substance: CISPLATIN
     Route: 042
     Dates: start: 20220112
  11. CISPLATIN [Concomitant]
     Active Substance: CISPLATIN
     Route: 042
     Dates: start: 20220209
  12. CISPLATIN [Concomitant]
     Active Substance: CISPLATIN
     Route: 042
     Dates: start: 20220209
  13. CISPLATIN [Concomitant]
     Active Substance: CISPLATIN
     Route: 042
     Dates: start: 20220303
  14. CISPLATIN [Concomitant]
     Active Substance: CISPLATIN
     Route: 042
     Dates: start: 20220303
  15. CAMRELIZUMAB [Concomitant]
     Active Substance: CAMRELIZUMAB
     Route: 042
     Dates: start: 20211202
  16. CAMRELIZUMAB [Concomitant]
     Active Substance: CAMRELIZUMAB
     Route: 042
     Dates: start: 20211223
  17. CAMRELIZUMAB [Concomitant]
     Active Substance: CAMRELIZUMAB
     Route: 042
     Dates: start: 20220112
  18. CAMRELIZUMAB [Concomitant]
     Active Substance: CAMRELIZUMAB
     Route: 042
     Dates: start: 20220209
  19. CAMRELIZUMAB [Concomitant]
     Active Substance: CAMRELIZUMAB
     Route: 042
     Dates: start: 20220303

REACTIONS (2)
  - Pain in extremity [Recovered/Resolved]
  - Product use in unapproved indication [Unknown]
